FAERS Safety Report 13160290 (Version 1)
Quarter: 2017Q1

REPORT INFORMATION
  Report Type: Spontaneous
  Country: US (occurrence: US)
  Receive Date: 20170127
  Receipt Date: 20170127
  Transmission Date: 20170428
  Serious: Yes (Hospitalization)
  Sender: FDA-Public Use
  Company Number: US-BAUSCH-BL-2017-000681

PATIENT
  Sex: Male

DRUGS (1)
  1. XIFAXAN [Suspect]
     Active Substance: RIFAXIMIN
     Indication: HEPATIC ENCEPHALOPATHY
     Route: 065
     Dates: start: 201611

REACTIONS (10)
  - Abdominal distension [Unknown]
  - Hyponatraemia [Unknown]
  - Acute kidney injury [Unknown]
  - Hyperkalaemia [Unknown]
  - Blood glucose increased [Unknown]
  - Asthenia [Unknown]
  - Blood creatine increased [Unknown]
  - Fatigue [Unknown]
  - Leukocytosis [Unknown]
  - Electrolyte imbalance [Unknown]
